FAERS Safety Report 18908155 (Version 2)
Quarter: 2021Q2

REPORT INFORMATION
  Report Type: Spontaneous
  Country: US (occurrence: US)
  Receive Date: 20210218
  Receipt Date: 20210402
  Transmission Date: 20210717
  Serious: No
  Sender: FDA-Public Use
  Company Number: US-ASTRAZENECA-2021A025209

PATIENT
  Age: 845 Month
  Sex: Female
  Weight: 73 kg

DRUGS (4)
  1. LOSARTAN. [Concomitant]
     Active Substance: LOSARTAN
  2. BYDUREON BCISE [Suspect]
     Active Substance: EXENATIDE
     Indication: TYPE 2 DIABETES MELLITUS
     Route: 058
     Dates: start: 201912
  3. GLIMEPIRIDE. [Concomitant]
     Active Substance: GLIMEPIRIDE
  4. FOSAMAX [Concomitant]
     Active Substance: ALENDRONATE SODIUM
     Indication: OSTEOPOROSIS
     Dates: start: 202101

REACTIONS (5)
  - Device leakage [Unknown]
  - Device malfunction [Not Recovered/Not Resolved]
  - Injection site pain [Unknown]
  - Drug dose omission by device [Unknown]
  - Osteoporosis [Unknown]

NARRATIVE: CASE EVENT DATE: 202101
